FAERS Safety Report 9962251 (Version 1)
Quarter: 2014Q1

REPORT INFORMATION
  Report Type: Report from Study
  Country: US (occurrence: US)
  Receive Date: 20140305
  Receipt Date: 20140305
  Transmission Date: 20141002
  Serious: No
  Sender: FDA-Public Use
  Company Number: US-ABBVIE-13P-163-1116102-00

PATIENT
  Sex: Female

DRUGS (1)
  1. HUMIRA [Suspect]
     Indication: RHEUMATOID ARTHRITIS
     Dates: start: 2007

REACTIONS (4)
  - Epistaxis [Recovered/Resolved]
  - Sinusitis [Unknown]
  - Back pain [Not Recovered/Not Resolved]
  - Rhinorrhoea [Recovered/Resolved]
